FAERS Safety Report 18201847 (Version 1)
Quarter: 2020Q3

REPORT INFORMATION
  Report Type: Spontaneous
  Country: US (occurrence: US)
  Receive Date: 20200826
  Receipt Date: 20200826
  Transmission Date: 20201103
  Serious: No
  Sender: FDA-Public Use
  Company Number: None

PATIENT
  Age: 68 Year
  Sex: Female

DRUGS (1)
  1. IBRANCE [Suspect]
     Active Substance: PALBOCICLIB
     Indication: BREAST CANCER FEMALE
     Route: 048
     Dates: start: 20191106

REACTIONS (5)
  - Blood pressure increased [None]
  - Feeling hot [None]
  - Therapy interrupted [None]
  - Arthropod sting [None]
  - Swelling [None]

NARRATIVE: CASE EVENT DATE: 20200825
